FAERS Safety Report 6759675-4 (Version None)
Quarter: 2010Q2

REPORT INFORMATION
  Report Type: 
  Country: None (occurrence: None)
  Receive Date: 20100608
  Receipt Date: 20100528
  Transmission Date: 20101027
  Serious: No
  Sender: FDA-Public Use
  Company Number: 2009BI030595

PATIENT
  Sex: Female

DRUGS (1)
  1. TYSABRI [Suspect]
     Indication: MULTIPLE SCLEROSIS
     Route: 042
     Dates: start: 20090601

REACTIONS (6)
  - FATIGUE [None]
  - FEELING COLD [None]
  - HEADACHE [None]
  - INFUSION SITE HAEMATOMA [None]
  - MEMORY IMPAIRMENT [None]
  - POOR VENOUS ACCESS [None]
